FAERS Safety Report 8589778-3 (Version None)
Quarter: 2012Q3

REPORT INFORMATION
  Report Type: 
  Country: None (occurrence: None)
  Receive Date: 20120813
  Receipt Date: 20120731
  Transmission Date: 20120928
  Serious: Yes (Disabling)
  Sender: FDA-Public Use
  Company Number: DE-ROCHE-1095366

PATIENT
  Age: 46 Year
  Sex: Female
  Weight: 55 kg

DRUGS (11)
  1. ABRAXANE [Suspect]
     Indication: METASTASES TO CENTRAL NERVOUS SYSTEM
  2. METOPROLOL TARTRATE [Concomitant]
     Indication: HYPERTENSION
  3. DEXAMETHASONE [Concomitant]
     Indication: METASTASES TO CENTRAL NERVOUS SYSTEM
     Dates: start: 20110101
  4. LEVOTHYROXINE SODIUM [Concomitant]
     Indication: HYPOTHYROIDISM
  5. ENOXAPARIN SODIUM [Concomitant]
     Indication: THROMBOSIS
  6. ABRAXANE [Suspect]
     Indication: BREAST CANCER
     Dates: start: 20120531, end: 20120628
  7. ABRAXANE [Suspect]
     Indication: METASTASES TO BONE
  8. AVASTIN [Suspect]
     Indication: METASTASES TO CENTRAL NERVOUS SYSTEM
     Dates: start: 20120425
  9. AVASTIN [Suspect]
     Indication: METASTASES TO LIVER
  10. AVASTIN [Suspect]
     Indication: METASTASES TO BONE
  11. ABRAXANE [Suspect]
     Indication: METASTASES TO LIVER

REACTIONS (2)
  - OPTIC ATROPHY [None]
  - BLINDNESS UNILATERAL [None]
